FAERS Safety Report 6121381-7 (Version None)
Quarter: 2009Q1

REPORT INFORMATION
  Report Type: 
  Country: None (occurrence: None)
  Receive Date: 20090313
  Receipt Date: 20090305
  Transmission Date: 20090719
  Serious: Yes (Life-Threatening)
  Sender: FDA-Public Use
  Company Number: APP200900090

PATIENT
  Age: 8 Year
  Sex: Male

DRUGS (7)
  1. HEPARIN SODIUM INJECTION [Suspect]
     Indication: CARDIOPULMONARY BYPASS
     Dosage: SEE IMAGE
     Route: 040
     Dates: start: 20090204, end: 20090204
  2. HEPARIN SODIUM INJECTION [Suspect]
  3. VECURONIUM BROMIDE [Concomitant]
  4. VERSED [Concomitant]
  5. ANCEF [Concomitant]
  6. SEVOFLURANE [Concomitant]
  7. DESFLURANE (DESFLURANE) [Concomitant]

REACTIONS (2)
  - ANAPHYLACTIC REACTION [None]
  - URTICARIA [None]
